FAERS Safety Report 22086226 (Version 1)
Quarter: 2023Q1

REPORT INFORMATION
  Report Type: Spontaneous
  Country: ZA (occurrence: ZA)
  Receive Date: 20230310
  Receipt Date: 20230310
  Transmission Date: 20230418
  Serious: Yes (Hospitalization)
  Sender: FDA-Public Use
  Company Number: ZA-NOVOPROD-1034254

PATIENT
  Age: 56 Year
  Sex: Female

DRUGS (2)
  1. INSULIN ASPART [Suspect]
     Active Substance: INSULIN ASPART
     Indication: Diabetes mellitus
     Dosage: 38 IU, BID
  2. INSULIN ASPART [Suspect]
     Active Substance: INSULIN ASPART
     Dosage: 28 IU, BID

REACTIONS (1)
  - Hospitalisation [Unknown]
